FAERS Safety Report 8212398-7 (Version None)
Quarter: 2012Q1

REPORT INFORMATION
  Report Type: 
  Country: None (occurrence: None)
  Receive Date: 20120315
  Receipt Date: 20120306
  Transmission Date: 20120608
  Serious: Yes (Hospitalization, Other)
  Sender: FDA-Public Use
  Company Number: US-SANOFI-AVENTIS-2012SA005321

PATIENT
  Age: 63 Year
  Sex: Female
  Weight: 74.4 kg

DRUGS (19)
  1. FLUOROURACIL [Suspect]
     Route: 041
     Dates: start: 20120111
  2. TYLENOL [Concomitant]
     Dates: start: 20111109
  3. DIPHENHYDRAMINE HCL [Concomitant]
     Dates: start: 20111109
  4. FLUOROURACIL [Suspect]
     Route: 040
     Dates: start: 20111130, end: 20111130
  5. FLUOROURACIL [Suspect]
     Route: 041
     Dates: start: 20111130, end: 20111202
  6. AVASTIN [Suspect]
     Route: 042
  7. ZOFRAN [Concomitant]
     Indication: NAUSEA
     Route: 048
     Dates: start: 20111230
  8. LEUCOVORIN CALCIUM [Suspect]
     Route: 042
     Dates: start: 20120111, end: 20120111
  9. AVASTIN [Suspect]
     Route: 042
     Dates: start: 20111214, end: 20111214
  10. ZOFRAN [Concomitant]
     Indication: VOMITING
     Route: 048
     Dates: start: 20111230
  11. PHENERGAN [Concomitant]
     Indication: NAUSEA
     Dates: start: 20111130
  12. ELOXATIN [Suspect]
     Dosage: 85MG/M2
     Route: 041
     Dates: start: 20120111, end: 20120111
  13. ELOXATIN [Suspect]
     Route: 041
     Dates: start: 20111130, end: 20111130
  14. LEUCOVORIN CALCIUM [Suspect]
     Route: 042
     Dates: start: 20111130, end: 20111130
  15. FLUOROURACIL [Suspect]
     Route: 040
     Dates: start: 20120111, end: 20120111
  16. PHENERGAN [Concomitant]
     Indication: VOMITING
     Dates: start: 20111130
  17. ELOXATIN [Suspect]
     Route: 041
     Dates: start: 20111228, end: 20111228
  18. LISINOPRIL [Concomitant]
     Indication: HYPERTENSION
     Route: 048
     Dates: start: 20111221
  19. KLOR-CON [Concomitant]
     Dates: start: 20111214

REACTIONS (26)
  - HYPOXIC-ISCHAEMIC ENCEPHALOPATHY [None]
  - EYELID PTOSIS [None]
  - DYSPNOEA [None]
  - COGNITIVE DISORDER [None]
  - TRANSIENT ISCHAEMIC ATTACK [None]
  - HYPERTENSION [None]
  - FACIAL PARESIS [None]
  - ANAEMIA [None]
  - LEUKOCYTOSIS [None]
  - STRIDOR [None]
  - PALLOR [None]
  - FALL [None]
  - MALIGNANT HYPERTENSION [None]
  - RESPIRATORY FAILURE [None]
  - NEUTROPENIA [None]
  - CARDIAC ARREST [None]
  - COMA [None]
  - THROMBOCYTOPENIA [None]
  - BALANCE DISORDER [None]
  - ANAPHYLACTIC REACTION [None]
  - ANGIOEDEMA [None]
  - ATAXIA [None]
  - WEIGHT DECREASED [None]
  - VENTRICULAR FIBRILLATION [None]
  - ORTHOSTATIC HYPOTENSION [None]
  - APRAXIA [None]
